FAERS Safety Report 5242696-0 (Version None)
Quarter: 2007Q1

REPORT INFORMATION
  Report Type: 
  Country: None (occurrence: None)
  Receive Date: 20061201
  Receipt Date: 20060710
  Transmission Date: 20070707
  Serious: No
  Sender: FDA-Public Use
  Company Number: 2006PV012197

PATIENT
  Age: 73 Year
  Sex: Male
  Weight: 83.9154 kg

DRUGS (7)
  1. BYETTA [Suspect]
     Indication: DIABETES MELLITUS NON-INSULIN-DEPENDENT
     Dosage: SEE IMAGE
     Route: 058
     Dates: start: 20060410, end: 20060509
  2. BYETTA [Suspect]
     Indication: DIABETES MELLITUS NON-INSULIN-DEPENDENT
     Dosage: SEE IMAGE
     Route: 058
     Dates: start: 20060410, end: 20060601
  3. BYETTA [Suspect]
     Indication: DIABETES MELLITUS NON-INSULIN-DEPENDENT
     Dosage: SEE IMAGE
     Route: 058
     Dates: start: 20060510
  4. BYETTA [Suspect]
     Indication: DIABETES MELLITUS NON-INSULIN-DEPENDENT
     Dosage: SEE IMAGE
     Route: 058
     Dates: start: 20060601
  5. METFORMIN [Concomitant]
  6. AVANDIA [Concomitant]
  7. GLIPIZIDE [Concomitant]

REACTIONS (7)
  - DECREASED APPETITE [None]
  - DIZZINESS [None]
  - FATIGUE [None]
  - INJECTION SITE PAIN [None]
  - IRRITABILITY [None]
  - SOMNOLENCE [None]
  - WEIGHT DECREASED [None]
